FAERS Safety Report 16384036 (Version 1)
Quarter: 2019Q2

REPORT INFORMATION
  Report Type: Spontaneous
  Country: EG (occurrence: EG)
  Receive Date: 20190603
  Receipt Date: 20190603
  Transmission Date: 20190711
  Serious: Yes (Death)
  Sender: FDA-Public Use
  Company Number: EG-JNJFOC-20190530391

PATIENT
  Age: 65 Year
  Sex: Male
  Weight: 103 kg

DRUGS (1)
  1. ZYTIGA [Suspect]
     Active Substance: ABIRATERONE ACETATE
     Indication: HORMONE-REFRACTORY PROSTATE CANCER
     Route: 048
     Dates: start: 201501, end: 201902

REACTIONS (5)
  - Product use in unapproved indication [Unknown]
  - Myocardial infarction [Fatal]
  - Sudden death [Fatal]
  - Prostatic specific antigen increased [Unknown]
  - Off label use [Unknown]

NARRATIVE: CASE EVENT DATE: 201501
